FAERS Safety Report 25926825 (Version 1)
Quarter: 2025Q4

REPORT INFORMATION
  Report Type: Spontaneous
  Country: US (occurrence: None)
  Receive Date: 20251015
  Receipt Date: 20251015
  Transmission Date: 20260118
  Serious: Yes (Hospitalization, Disabling, Other)
  Sender: FDA-CTU
  Company Number: None

PATIENT
  Age: 82 Year
  Sex: Female
  Weight: 88.2 kg

DRUGS (3)
  1. HIZENTRA [Suspect]
     Active Substance: HUMAN IMMUNOGLOBULIN G
     Indication: COVID-19
  2. RYBELSUS [Concomitant]
     Active Substance: SEMAGLUTIDE
  3. ARMOUR THYROID [Concomitant]
     Active Substance: THYROID, PORCINE

REACTIONS (5)
  - Thrombosis [None]
  - Therapy cessation [None]
  - Deep vein thrombosis [None]
  - Dyspnoea [None]
  - Myocardial necrosis marker increased [None]

NARRATIVE: CASE EVENT DATE: 20250615
